FAERS Safety Report 9649507 (Version 2)
Quarter: 2013Q4

REPORT INFORMATION
  Report Type: Report from Study
  Country: AU (occurrence: AU)
  Receive Date: 20131028
  Receipt Date: 20131028
  Transmission Date: 20140711
  Serious: Yes (Hospitalization)
  Sender: FDA-Public Use
  Company Number: PHHY2010AU04713

PATIENT
  Age: 46 Year
  Sex: Female

DRUGS (15)
  1. CLOZARIL [Suspect]
     Indication: SCHIZOPHRENIA
     Dosage: 650 MG, DAILY
     Route: 048
     Dates: start: 19940421, end: 20130905
  2. CLOZARIL [Suspect]
     Dosage: 700 MG, DAILY
     Route: 048
     Dates: start: 20130905
  3. ASPIRIN [Concomitant]
     Indication: ANTICOAGULANT THERAPY
     Dosage: 100 MG, MANE
     Route: 048
  4. RANITIDINE [Concomitant]
     Indication: GASTROOESOPHAGEAL REFLUX DISEASE
     Dosage: 150 MG, BID
     Route: 048
  5. ATORVASTATIN [Concomitant]
     Indication: HYPERLIPIDAEMIA
     Dosage: 20 MG, NOCTE
     Route: 048
  6. ATORVASTATIN [Concomitant]
     Indication: BLOOD CHOLESTEROL INCREASED
  7. HYOSCINE HYDROBROMIDE [Concomitant]
     Indication: SALIVARY HYPERSECRETION
     Dosage: 150 MG, UNK
     Route: 002
  8. CHOLECALCIFEROL [Concomitant]
     Indication: VITAMIN D DECREASED
     Dosage: 25 MCG, MANE
     Route: 048
  9. INSULIN GLARGINE [Concomitant]
     Indication: DIABETES MELLITUS
     Dosage: 18 U, MANE
     Route: 058
  10. MOVICOL [Concomitant]
     Indication: CONSTIPATION
     Dosage: 1-3 SACHETS DAILY
     Route: 048
     Dates: start: 20130817
  11. MOVICOL [Concomitant]
     Dosage: 1 DF, DAILY
     Route: 048
     Dates: start: 201309
  12. VALPROATE SODIUM [Concomitant]
     Indication: AFFECTIVE DISORDER
     Dosage: 1 G, BID
     Route: 048
  13. VALPROATE SODIUM [Concomitant]
     Dosage: 2000 MG, DAILY
     Route: 048
  14. DOCUSATE SODIUM\SENNOSIDES [Concomitant]
     Indication: CONSTIPATION
     Dosage: 2 DF, NOCTE
     Dates: start: 20130817
  15. VITAMIN D [Concomitant]
     Indication: VITAMIN D DECREASED
     Dosage: 1000 IU, DAILY
     Route: 048

REACTIONS (8)
  - Stress [Unknown]
  - Mental impairment [Unknown]
  - Thinking abnormal [Unknown]
  - Constipation [Recovering/Resolving]
  - Schizophrenia [Recovered/Resolved]
  - Agitation [Unknown]
  - Antipsychotic drug level increased [Unknown]
  - Antipsychotic drug level decreased [Recovered/Resolved]
